FAERS Safety Report 12366437 (Version 1)
Quarter: 2016Q2

REPORT INFORMATION
  Report Type: Report from Study
  Country: US (occurrence: US)
  Receive Date: 20160513
  Receipt Date: 20160513
  Transmission Date: 20160815
  Serious: Yes (Hospitalization, Other)
  Sender: FDA-Public Use
  Company Number: US-BRISTOL-MYERS SQUIBB COMPANY-BMS-2016-035842

PATIENT
  Age: 85 Year
  Sex: Female
  Weight: 51.7 kg

DRUGS (1)
  1. NIVOLUMAB [Suspect]
     Active Substance: NIVOLUMAB
     Indication: NON-SMALL CELL LUNG CANCER
     Route: 042

REACTIONS (10)
  - Seizure [Unknown]
  - Skin exfoliation [Unknown]
  - Pneumonia aspiration [Unknown]
  - Loss of consciousness [Unknown]
  - Lacrimation increased [Unknown]
  - Troponin increased [Unknown]
  - Hemiparesis [Unknown]
  - Encephalitis [Unknown]
  - Myocardial infarction [Unknown]
  - Pyrexia [Unknown]

NARRATIVE: CASE EVENT DATE: 20160424
